FAERS Safety Report 21963998 (Version 1)
Quarter: 2023Q1

REPORT INFORMATION
  Report Type: Spontaneous
  Country: US (occurrence: None)
  Receive Date: 20230206
  Receipt Date: 20230206
  Transmission Date: 20230418
  Serious: Yes (Hospitalization, Other)
  Sender: FDA-Public Use
  Company Number: None

PATIENT
  Age: 73 Year
  Sex: Male
  Weight: 85.28 kg

DRUGS (7)
  1. JARDIANCE [Suspect]
     Active Substance: EMPAGLIFLOZIN
  2. ATORVASTATIN -TAB-80MG [Concomitant]
  3. METFORMIN -TAB-1000MG [Concomitant]
  4. AMLODIPINE -TAB?10MG [Concomitant]
  5. CARVEDILOL-TAB-6.25MG [Concomitant]
  6. NOVOLIN 70/30 FLEXPEN-70/30 [Concomitant]
  7. LISINOPRIL/HCTZ-TAB?20-12.5 [Concomitant]

REACTIONS (6)
  - Weight decreased [None]
  - Asthenia [None]
  - Decreased appetite [None]
  - Aphonia [None]
  - Loss of consciousness [None]
  - Balance disorder [None]

NARRATIVE: CASE EVENT DATE: 20221127
